FAERS Safety Report 9333025 (Version 2)
Quarter: 2013Q2

REPORT INFORMATION
  Report Type: Spontaneous
  Country: US (occurrence: US)
  Receive Date: 20130606
  Receipt Date: 20130619
  Transmission Date: 20140414
  Serious: Yes (Hospitalization)
  Sender: FDA-Public Use
  Company Number: US-UCBSA-087835

PATIENT
  Sex: Male

DRUGS (14)
  1. XYREM [Suspect]
     Indication: CATAPLEXY
     Route: 048
     Dates: start: 20120718
  2. XYREM [Suspect]
     Indication: NARCOLEPSY
     Dosage: TITRATING DOSE)
     Route: 048
  3. XYREM [Suspect]
     Indication: CATAPLEXY
     Dosage: TITRATING DOSE)
     Route: 048
  4. XYREM [Suspect]
     Indication: NARCOLEPSY
     Dosage: NIGHTLY
     Route: 048
     Dates: start: 20100804
  5. XYREM [Suspect]
     Indication: CATAPLEXY
     Dosage: NIGHTLY
     Route: 048
     Dates: start: 20100804
  6. METHYLPHENIDATE [Suspect]
     Indication: NARCOLEPSY
     Dosage: DOSE : 20 MG
  7. METFORMIN [Concomitant]
     Indication: DIABETES MELLITUS
     Dosage: DOSE : 1000 MG
  8. ATORVASTATIN [Concomitant]
     Indication: BLOOD CHOLESTEROL INCREASED
  9. OXYCODONE [Concomitant]
     Indication: BACK INJURY
     Dosage: DOSE : 40 MG
  10. LISINOPRIL [Concomitant]
     Indication: HYPERTENSION
  11. GLYBURIDE [Concomitant]
     Indication: DIABETES MELLITUS
  12. AMLODIPINE [Concomitant]
     Indication: HYPERTENSION
  13. LEVOTHYROXINE [Concomitant]
     Indication: HYPOTHYROIDISM
  14. XYREM [Suspect]
     Indication: NARCOLEPSY
     Route: 048
     Dates: start: 20120718

REACTIONS (7)
  - Surgery [Recovered/Resolved]
  - Cataplexy [Recovered/Resolved]
  - Crying [Recovered/Resolved]
  - Insomnia [Not Recovered/Not Resolved]
  - Stress [Not Recovered/Not Resolved]
  - Memory impairment [Not Recovered/Not Resolved]
  - Confusional state [Recovered/Resolved]
